FAERS Safety Report 9225554 (Version 2)
Quarter: 2013Q2

REPORT INFORMATION
  Report Type: Spontaneous
  Country: JP (occurrence: JP)
  Receive Date: 20130411
  Receipt Date: 20130613
  Transmission Date: 20140414
  Serious: Yes (Death)
  Sender: FDA-Public Use
  Company Number: JP-ROCHE-GNE209390

PATIENT
  Age: 83 Year
  Sex: Female

DRUGS (2)
  1. ACTILYSE [Suspect]
     Indication: CARDIAC ARREST
     Dosage: SINGLE
     Route: 042
  2. ACTILYSE [Suspect]
     Indication: PULMONARY EMBOLISM
     Dosage: 9 MIU, SINGLE
     Route: 042

REACTIONS (2)
  - Wound haemorrhage [Fatal]
  - Multi-organ failure [Fatal]
